FAERS Safety Report 7778044-1 (Version None)
Quarter: 2011Q3

REPORT INFORMATION
  Report Type: 
  Country: None (occurrence: None)
  Receive Date: 20110926
  Receipt Date: 20110916
  Transmission Date: 20111222
  Serious: Yes (Hospitalization, Other)
  Sender: FDA-Public Use
  Company Number: US-CELGENEUS-163-21880-11092182

PATIENT
  Sex: Female
  Weight: 92.616 kg

DRUGS (8)
  1. PAXIL [Concomitant]
     Indication: DEPRESSION
     Dosage: 20 MILLIGRAM
     Route: 048
  2. ALOXI [Concomitant]
     Indication: NAUSEA
     Route: 048
  3. LITHIUM [Concomitant]
     Dosage: 600 MILLIGRAM
     Route: 048
  4. CLONAZEPAM [Concomitant]
     Dosage: 2 MILLIGRAM
     Route: 048
  5. DEXAMETHASONE [Concomitant]
     Route: 048
  6. REVLIMID [Suspect]
     Dosage: 25 MILLIGRAM
     Route: 048
     Dates: start: 20110422
  7. ALOXI [Concomitant]
     Indication: VOMITING
  8. VELCADE [Concomitant]
     Route: 065

REACTIONS (2)
  - TOXICITY TO VARIOUS AGENTS [None]
  - DEHYDRATION [None]
